FAERS Safety Report 22638023 (Version 1)
Quarter: 2023Q2

REPORT INFORMATION
  Report Type: Spontaneous
  Country: CN (occurrence: None)
  Receive Date: 20230626
  Receipt Date: 20230626
  Transmission Date: 20230722
  Serious: Yes (Other)
  Sender: FDA-Public Use
  Company Number: CN-ROCHE-3372401

PATIENT
  Age: 34 Year
  Sex: Female

DRUGS (11)
  1. HERCEPTIN [Suspect]
     Active Substance: TRASTUZUMAB
     Indication: Invasive ductal breast carcinoma
     Dosage: THP
     Route: 065
  2. PERJETA [Suspect]
     Active Substance: PERTUZUMAB
     Indication: Invasive ductal breast carcinoma
     Dosage: THP
     Route: 065
  3. KADCYLA [Suspect]
     Active Substance: ADO-TRASTUZUMAB EMTANSINE
     Indication: Invasive ductal breast carcinoma
     Route: 065
     Dates: start: 20230429
  4. EPIRUBICIN HYDROCHLORIDE [Concomitant]
     Active Substance: EPIRUBICIN HYDROCHLORIDE
     Indication: Invasive ductal breast carcinoma
     Dosage: EC-T FOR 2 CYCLES
  5. CYCLOPHOSPHAMIDE [Concomitant]
     Active Substance: CYCLOPHOSPHAMIDE
     Indication: Invasive ductal breast carcinoma
     Dosage: EC-T FOR 2 CYCLES
  6. PACLITAXEL [Concomitant]
     Active Substance: PACLITAXEL
     Indication: Invasive ductal breast carcinoma
     Dosage: EC-T FOR 2 CYCLES, THP
  7. ZOLEDRONIC ACID [Concomitant]
     Active Substance: ZOLEDRONIC ACID
     Indication: Invasive ductal breast carcinoma
     Dates: start: 20230429
  8. GOSERELIN [Concomitant]
     Active Substance: GOSERELIN
     Indication: Invasive ductal breast carcinoma
  9. LETROZOLE [Concomitant]
     Active Substance: LETROZOLE
     Indication: Invasive ductal breast carcinoma
  10. EXEMESTANE [Concomitant]
     Active Substance: EXEMESTANE
     Indication: Invasive ductal breast carcinoma
     Dates: start: 20230429
  11. OPRELVEKIN [Concomitant]
     Active Substance: OPRELVEKIN

REACTIONS (2)
  - Bone pain [Unknown]
  - Platelet count decreased [Recovered/Resolved]
